FAERS Safety Report 6753621-5 (Version None)
Quarter: 2010Q2

REPORT INFORMATION
  Report Type: 
  Country: None (occurrence: None)
  Receive Date: 20100603
  Receipt Date: 20100524
  Transmission Date: 20101027
  Serious: Yes (Hospitalization)
  Sender: FDA-Public Use
  Company Number: JP-ROCHE-697103

PATIENT
  Sex: Female
  Weight: 45 kg

DRUGS (11)
  1. TOCILIZUMAB [Suspect]
     Indication: RHEUMATOID ARTHRITIS
     Route: 041
     Dates: start: 20091009, end: 20091009
  2. TOCILIZUMAB [Suspect]
     Route: 041
     Dates: start: 20091106, end: 20091106
  3. PREDNISOLONE [Concomitant]
     Dosage: FORM REPORTED AS : PERORAL AGENT.
     Route: 048
     Dates: start: 20090708, end: 20091014
  4. PREDNISOLONE [Concomitant]
     Dosage: FORM REPORTED AS PERORAL AGENT.
     Route: 048
     Dates: start: 20091015, end: 20091029
  5. PREDNISOLONE [Concomitant]
     Dosage: FORM REPORTED AS PERORAL AGENT.
     Route: 048
     Dates: start: 20091030, end: 20091203
  6. CALFINA [Concomitant]
     Dosage: FORM REPORTED AS PERORAL AGENT.
     Route: 048
     Dates: end: 20091203
  7. OMEPRAL [Concomitant]
     Dosage: FORM REPORTED AS ENTERIC COATED DRUG.
     Route: 048
     Dates: end: 20091203
  8. PROTECADIN [Concomitant]
     Route: 048
     Dates: end: 20091203
  9. INFREE [Concomitant]
     Dosage: DRUG REPORTED AS INDOMETACIN FARNESIL.
     Route: 048
     Dates: end: 20091203
  10. CYTOTEC [Concomitant]
     Route: 048
     Dates: end: 20091203
  11. BONALON [Concomitant]
     Dosage: DRUG REPORTED AS BONALON 35 MG (ALENDRONATE SODIUM HYDRATE)
     Route: 048
     Dates: end: 20091203

REACTIONS (3)
  - HEPATOSPLENOMEGALY [None]
  - INTERSTITIAL LUNG DISEASE [None]
  - PANCYTOPENIA [None]
